FAERS Safety Report 11114882 (Version 2)
Quarter: 2015Q2

REPORT INFORMATION
  Report Type: Spontaneous
  Country: US (occurrence: US)
  Receive Date: 20150515
  Receipt Date: 20150602
  Transmission Date: 20150821
  Serious: Yes (Other)
  Sender: FDA-Public Use
  Company Number: US-SUN PHARMACEUTICAL INDUSTRIES LTD-2015US-97182

PATIENT
  Age: 60 Year
  Sex: Male

DRUGS (2)
  1. HYDROCORTISONE. [Suspect]
     Active Substance: HYDROCORTISONE
     Indication: ADDISON^S DISEASE
     Dosage: 30 MG, DAILY (20 MG IN MORNING AND 10 MG IN EVENING)
     Route: 065
  2. FLUDROCORTISONE [Suspect]
     Active Substance: FLUDROCORTISONE
     Indication: ADDISON^S DISEASE
     Dosage: 0.1 MG, DAILY
     Route: 065

REACTIONS (4)
  - Type 2 diabetes mellitus [Unknown]
  - Primary adrenal insufficiency [Unknown]
  - Primary hypothyroidism [Unknown]
  - Pituitary tumour [Unknown]
